FAERS Safety Report 9301468 (Version 1)
Quarter: 2013Q2

REPORT INFORMATION
  Report Type: Spontaneous
  Country: US (occurrence: US)
  Receive Date: 20130520
  Receipt Date: 20130520
  Transmission Date: 20140414
  Serious: Yes (Other)
  Sender: FDA-Public Use
  Company Number: US-RB-046742-12

PATIENT
  Age: 25 Year
  Sex: Female

DRUGS (5)
  1. SUBOXONE FILM [Suspect]
     Indication: DRUG DEPENDENCE
     Dosage: SUBOXONE FILM
     Route: 060
     Dates: start: 2011
  2. SUBOXONE TABLET [Suspect]
     Indication: PRODUCT USED FOR UNKNOWN INDICATION
     Dosage: DOSING DETAILS UNKNOWN
     Route: 065
  3. SUBUTEX [Suspect]
     Indication: PRODUCT USED FOR UNKNOWN INDICATION
     Dosage: DOSING DETAILS UNKNOWN
     Route: 065
  4. PRENATAL VITAMINS [Concomitant]
     Indication: PREGNANCY
     Dosage: DOSING DETAILS UNKNOWN
     Route: 065
     Dates: start: 201210
  5. NICOTINE [Concomitant]
     Indication: NICOTINE DEPENDENCE
     Dosage: ONE PACK PER DAY
     Route: 065

REACTIONS (4)
  - Substance abuse [Not Recovered/Not Resolved]
  - Exposure during pregnancy [Recovered/Resolved]
  - Nausea [Unknown]
  - Abortion spontaneous [Recovered/Resolved]
